FAERS Safety Report 8511051-X (Version None)
Quarter: 2012Q2

REPORT INFORMATION
  Report Type: 
  Country: None (occurrence: None)
  Receive Date: 20120406
  Receipt Date: 20090928
  Transmission Date: 20120825
  Serious: Yes (Other)
  Sender: FDA-Public Use
  Company Number: PHEH2009US12480

PATIENT
  Age: 60 Year
  Sex: Female
  Weight: 92.5 kg

DRUGS (2)
  1. TASIGNA [Suspect]
     Indication: CHRONIC MYELOID LEUKAEMIA
     Dosage: 400 MG, BID, ORAL ; 400 MG, BID, ORAL
     Route: 048
     Dates: start: 20090914, end: 20090918
  2. TASIGNA [Suspect]
     Indication: CHRONIC MYELOID LEUKAEMIA
     Dosage: 400 MG, BID, ORAL ; 400 MG, BID, ORAL
     Route: 048
     Dates: start: 20090829, end: 20090903

REACTIONS (4)
  - PERSONALITY CHANGE [None]
  - JAUNDICE [None]
  - DECREASED APPETITE [None]
  - HEADACHE [None]
